FAERS Safety Report 7421939-9 (Version None)
Quarter: 2011Q2

REPORT INFORMATION
  Report Type: 
  Country: None (occurrence: None)
  Receive Date: 20110418
  Receipt Date: 20110404
  Transmission Date: 20111010
  Serious: Yes (Other)
  Sender: FDA-Public Use
  Company Number: FR-CELGENEUS-056-50794-10051892

PATIENT
  Sex: Male

DRUGS (7)
  1. ELISOR [Concomitant]
     Route: 065
  2. NEXIUM [Concomitant]
     Route: 065
  3. DILTIAZEM [Concomitant]
     Route: 065
  4. STILNOX [Concomitant]
     Route: 065
  5. METFORMIN [Suspect]
     Route: 065
     Dates: start: 20100301, end: 20100525
  6. TRIATEC [Concomitant]
     Route: 065
  7. VIDAZA [Suspect]
     Dosage: 75 MILLIGRAM/SQ. METER
     Route: 058
     Dates: start: 20090806, end: 20100401

REACTIONS (1)
  - HEPATIC FUNCTION ABNORMAL [None]
